FAERS Safety Report 21305660 (Version 1)
Quarter: 2022Q3

REPORT INFORMATION
  Report Type: Spontaneous
  Country: US (occurrence: US)
  Receive Date: 20220908
  Receipt Date: 20220908
  Transmission Date: 20221027
  Serious: No
  Sender: FDA-Public Use
  Company Number: US-STRIDES ARCOLAB LIMITED-2022SP010612

PATIENT

DRUGS (1)
  1. AMANTADINE [Suspect]
     Active Substance: AMANTADINE
     Indication: Craniocerebral injury
     Dosage: 400 MG PER DAY, 8.2 MG/KG/DAY
     Route: 065

REACTIONS (2)
  - Agitation [Unknown]
  - Off label use [Unknown]
